FAERS Safety Report 11575417 (Version 1)
Quarter: 2015Q3

REPORT INFORMATION
  Report Type: Spontaneous
  Country: US (occurrence: US)
  Receive Date: 20150916
  Receipt Date: 20150916
  Transmission Date: 20151125
  Serious: No
  Sender: FDA-Public Use
  Company Number: US-ELI_LILLY_AND_COMPANY-US200911006303

PATIENT
  Sex: Female

DRUGS (3)
  1. FORTEO [Suspect]
     Active Substance: TERIPARATIDE
     Indication: OSTEOPOROSIS
     Dosage: UNK, UNKNOWN
     Dates: start: 200908, end: 200910
  2. VITAMINS [Concomitant]
     Active Substance: VITAMINS
     Dosage: UNK, UNKNOWN
  3. CALCIUM [Concomitant]
     Active Substance: CALCIUM
     Dosage: UNK, UNKNOWN

REACTIONS (6)
  - Calcinosis [Unknown]
  - Jaw disorder [Unknown]
  - Arthralgia [Unknown]
  - Pain in extremity [Unknown]
  - Pain [Unknown]
  - Toothache [Unknown]

NARRATIVE: CASE EVENT DATE: 2009
